FAERS Safety Report 11989115 (Version 1)
Quarter: 2016Q1

REPORT INFORMATION
  Report Type: Spontaneous
  Country: US (occurrence: US)
  Receive Date: 20160202
  Receipt Date: 20160202
  Transmission Date: 20160526
  Serious: Yes (Hospitalization)
  Sender: FDA-Public Use
  Company Number: US-MYLANLABS-2015M1012324

PATIENT
  Sex: Female
  Weight: 156.92 kg

DRUGS (3)
  1. FONDAPARINUX [Suspect]
     Active Substance: FONDAPARINUX
     Indication: OFF LABEL USE
  2. FONDAPARINUX [Suspect]
     Active Substance: FONDAPARINUX
     Indication: HYPERCOAGULATION
  3. FONDAPARINUX [Suspect]
     Active Substance: FONDAPARINUX
     Indication: FACTOR V DEFICIENCY
     Dosage: 10 MG, QD
     Route: 058
     Dates: start: 201104

REACTIONS (2)
  - Haematoma [Not Recovered/Not Resolved]
  - Contusion [Recovering/Resolving]

NARRATIVE: CASE EVENT DATE: 2015
